FAERS Safety Report 10729063 (Version 1)
Quarter: 2015Q1

REPORT INFORMATION
  Report Type: Spontaneous
  Country: US (occurrence: None)
  Receive Date: 20150120
  Receipt Date: 20150120
  Transmission Date: 20150721
  Serious: Yes (Other)
  Sender: FDA-Public Use
  Company Number: None

PATIENT
  Age: 15 Year
  Sex: Male
  Weight: 79.38 kg

DRUGS (5)
  1. SPIROLACTONE [Concomitant]
     Active Substance: SPIRONOLACTONE
  2. MULTI VIT [Concomitant]
  3. PROPOFENERONE [Concomitant]
  4. LOSARTAN [Concomitant]
     Active Substance: LOSARTAN
  5. XARELTO [Suspect]
     Active Substance: RIVAROXABAN
     Indication: THROMBOSIS
     Dosage: 20MG?30 PILLS?ONE QD?PO
     Route: 048
     Dates: start: 20141229, end: 20141231

REACTIONS (1)
  - Rash [None]

NARRATIVE: CASE EVENT DATE: 20141230
